FAERS Safety Report 6253674-7 (Version None)
Quarter: 2009Q3

REPORT INFORMATION
  Report Type: 
  Country: None (occurrence: None)
  Receive Date: 20090701
  Receipt Date: 20090318
  Transmission Date: 20100115
  Serious: Yes (Other)
  Sender: FDA-Public Use
  Company Number: TR-ELI_LILLY_AND_COMPANY-TR200906006675

PATIENT
  Age: 43 Year
  Sex: Male

DRUGS (5)
  1. HUMULIN 70/30 [Suspect]
     Indication: DIABETES MELLITUS
     Dosage: 12 IU, EACH MORNING
     Route: 058
     Dates: start: 20020301
  2. RENAGEL [Concomitant]
     Route: 048
     Dates: start: 20061123
  3. FOLBIOL [Concomitant]
     Route: 048
     Dates: start: 20061123
  4. OLMESARTAN MEDOXOMIL [Concomitant]
     Route: 048
     Dates: start: 20061123
  5. BENEXOL [Concomitant]
     Route: 048

REACTIONS (1)
  - RENAL FAILURE [None]
